FAERS Safety Report 4312509-X (Version None)
Quarter: 2004Q1

REPORT INFORMATION
  Report Type: 
  Country: None (occurrence: None)
  Receive Date: 20040303
  Receipt Date: 20040217
  Transmission Date: 20041129
  Serious: Yes (Hospitalization)
  Sender: FDA-Public Use
  Company Number: 2004-BP-00598BP

PATIENT
  Age: 94 Year
  Sex: Male

DRUGS (8)
  1. FLOMAX [Suspect]
     Indication: BENIGN PROSTATIC HYPERPLASIA
     Dosage: SEE IMAGE
     Route: 048
     Dates: start: 20040105
  2. FLOMAX [Suspect]
     Indication: DYSURIA
     Dosage: SEE IMAGE
     Route: 048
     Dates: start: 20040105
  3. FLOMAX [Suspect]
     Indication: INFECTION
     Dosage: SEE IMAGE
     Route: 048
     Dates: start: 20040105
  4. BUSPAR [Concomitant]
  5. KLONOPIN [Concomitant]
  6. DHEA (PRASTERONE) [Concomitant]
  7. STOOL SOFTENER (DOCUSATE SODIUM) [Concomitant]
  8. CENTRUM SILVER (CENTRUM SILVER) [Concomitant]

REACTIONS (3)
  - CYSTITIS [None]
  - MICTURITION URGENCY [None]
  - SLEEP DISORDER [None]
